FAERS Safety Report 5252121-1 (Version None)
Quarter: 2007Q1

REPORT INFORMATION
  Report Type: 
  Country: None (occurrence: None)
  Receive Date: 20070226
  Receipt Date: 20070215
  Transmission Date: 20070707
  Serious: Yes (Death, Hospitalization, Other)
  Sender: FDA-Public Use
  Company Number: 163-21880-07020867

PATIENT
  Age: 82 Year
  Sex: Male

DRUGS (18)
  1. REVLIMID [Suspect]
     Indication: MYELODYSPLASTIC SYNDROME
     Dosage: 2.5 MG, 1 IN 2 D; ORAL, 10MG, 1 IN 1 D; ORAL
     Route: 048
     Dates: start: 20060531, end: 20060101
  2. REVLIMID [Suspect]
     Indication: MYELODYSPLASTIC SYNDROME
     Dosage: 2.5 MG, 1 IN 2 D; ORAL, 10MG, 1 IN 1 D; ORAL
     Route: 048
     Dates: start: 20061005, end: 20061007
  3. TYLENOL [Concomitant]
  4. LEVOXYL [Concomitant]
  5. MULTI-VITAMIN [Concomitant]
  6. VITAMIN [Concomitant]
  7. TYLENOL [Concomitant]
  8. LEVOXYL [Concomitant]
  9. MULTI-VITAMIN [Concomitant]
  10. VITAMIN B6 [Concomitant]
  11. ATENOLOL [Concomitant]
  12. COUMADIN [Concomitant]
  13. POTASSIUM CHLORIDE [Concomitant]
  14. LASIX [Concomitant]
  15. MAGNESIUM (MAGNESIUM) [Concomitant]
  16. AMARYL [Concomitant]
  17. PREVACID [Concomitant]
  18. PREDNISONE TAB [Concomitant]

REACTIONS (11)
  - ANAEMIA [None]
  - ATRIAL FIBRILLATION [None]
  - BLOOD ALBUMIN DECREASED [None]
  - BLOOD CALCIUM DECREASED [None]
  - BLOOD GLUCOSE INCREASED [None]
  - BLOOD UREA INCREASED [None]
  - BLOOD URINE PRESENT [None]
  - CHEST X-RAY ABNORMAL [None]
  - ENTEROCOLITIS HAEMORRHAGIC [None]
  - INTERNATIONAL NORMALISED RATIO INCREASED [None]
  - ORTHOSTATIC HYPOTENSION [None]
